FAERS Safety Report 12795034 (Version 4)
Quarter: 2016Q4

REPORT INFORMATION
  Report Type: Spontaneous
  Country: JP (occurrence: JP)
  Receive Date: 20160929
  Receipt Date: 20161222
  Transmission Date: 20170207
  Serious: Yes (Other)
  Sender: FDA-Public Use
  Company Number: JP-GLAXOSMITHKLINE-JP2016JPN136843

PATIENT
  Age: 71 Year
  Sex: Female

DRUGS (1)
  1. ZANTAC [Suspect]
     Active Substance: RANITIDINE HYDROCHLORIDE
     Indication: GASTROOESOPHAGEAL REFLUX DISEASE
     Dosage: 75 MG, BID
     Route: 048
     Dates: start: 201508, end: 201609

REACTIONS (3)
  - Muscle spasms [Not Recovered/Not Resolved]
  - Tumour marker increased [Recovering/Resolving]
  - Breast cancer recurrent [Not Recovered/Not Resolved]

NARRATIVE: CASE EVENT DATE: 201609
